FAERS Safety Report 25413404 (Version 1)
Quarter: 2025Q2

REPORT INFORMATION
  Report Type: Spontaneous
  Country: US (occurrence: None)
  Receive Date: 20250607
  Receipt Date: 20250607
  Transmission Date: 20250716
  Serious: Yes (Hospitalization)
  Sender: FDA-CTU
  Company Number: None

PATIENT
  Age: 63 Year
  Sex: Female

DRUGS (4)
  1. DEFERASIROX [Suspect]
     Active Substance: DEFERASIROX
     Dosage: FREQUENCY : DAILY;?
     Route: 048
     Dates: start: 20221103
  2. FOSAMAX [Suspect]
     Active Substance: ALENDRONATE SODIUM
  3. ESOMEPRAZOLE MAGNESIUM [Concomitant]
     Active Substance: ESOMEPRAZOLE MAGNESIUM
  4. RYTELO [Concomitant]
     Active Substance: IMETELSTAT SODIUM

REACTIONS (4)
  - Hypervolaemia [None]
  - Atrial fibrillation [None]
  - Therapy interrupted [None]
  - Cardiac failure congestive [None]

NARRATIVE: CASE EVENT DATE: 20250523
